FAERS Safety Report 6866955-0 (Version None)
Quarter: 2010Q3

REPORT INFORMATION
  Report Type: 
  Country: None (occurrence: None)
  Receive Date: 20100722
  Receipt Date: 20100712
  Transmission Date: 20110219
  Serious: Yes (Death, Hospitalization, Other)
  Sender: FDA-Public Use
  Company Number: JP-ROCHE-664970

PATIENT
  Sex: Male
  Weight: 60 kg

DRUGS (7)
  1. AVASTIN [Suspect]
     Indication: COLON CANCER METASTATIC
     Route: 041
     Dates: start: 20080414, end: 20090107
  2. FLUOROURACIL [Suspect]
     Indication: COLON CANCER METASTATIC
     Dosage: ROUTE: INTRAVENOUS BOLUS
     Route: 042
     Dates: start: 20080414, end: 20090107
  3. FLUOROURACIL [Suspect]
     Dosage: ROUTE: INTRAVENOUS DRIP
     Route: 042
     Dates: start: 20080414, end: 20090101
  4. ISOVORIN [Concomitant]
     Route: 041
     Dates: start: 20080414, end: 20090107
  5. ELPLAT [Concomitant]
     Route: 041
     Dates: start: 20080414, end: 20090107
  6. LAC-B [Concomitant]
     Route: 048
     Dates: start: 20080724, end: 20090107
  7. DAI-KENCHU-TO [Concomitant]
     Dosage: DOSE FORM: GRANULATED POWDER
     Route: 048
     Dates: start: 20081118, end: 20090107

REACTIONS (11)
  - ANAEMIA [None]
  - ANAEMIA HAEMOLYTIC AUTOIMMUNE [None]
  - DIARRHOEA [None]
  - DISSEMINATED INTRAVASCULAR COAGULATION [None]
  - EPISTAXIS [None]
  - GASTROINTESTINAL DISORDER [None]
  - HAEMATURIA [None]
  - INTESTINAL OBSTRUCTION [None]
  - MELAENA [None]
  - MULTI-ORGAN FAILURE [None]
  - NEUTROPENIA [None]
